FAERS Safety Report 9535537 (Version 2)
Quarter: 2013Q3

REPORT INFORMATION
  Report Type: Spontaneous
  Country: CA (occurrence: CA)
  Receive Date: 20130918
  Receipt Date: 20130920
  Transmission Date: 20140515
  Serious: Yes (Other)
  Sender: FDA-Public Use
  Company Number: CA-JNJFOC-20130902509

PATIENT
  Age: 25 Year
  Sex: Male

DRUGS (1)
  1. POLYSPORIN ORIGINAL CREAM [Suspect]
     Indication: INFECTION
     Route: 061

REACTIONS (1)
  - Application site infection [Unknown]
